FAERS Safety Report 7376432-9 (Version None)
Quarter: 2011Q1

REPORT INFORMATION
  Report Type: 
  Country: None (occurrence: None)
  Receive Date: 20110325
  Receipt Date: 20101104
  Transmission Date: 20110831
  Serious: Yes (Hospitalization)
  Sender: FDA-Public Use
  Company Number: JP-PFIZER INC-JP-WYE-H18287210

PATIENT
  Age: 65 Year
  Sex: Male

DRUGS (1)
  1. ANCARON [Suspect]
     Indication: VENTRICULAR TACHYCARDIA
     Dosage: UNK
     Route: 048

REACTIONS (1)
  - THYROIDITIS [None]
